FAERS Safety Report 8590280 (Version 3)
Quarter: 2012Q4

REPORT INFORMATION
  Report Type: 
  Country: DE (occurrence: DE)
  Receive Date: 20120510
  Receipt Date: 20121213
  Transmission Date: 20130627
  Serious: Yes (Life-Threatening, Hospitalization, Other)
  Sender: FDA-Public Use
  Company Number: DE-BAYER-2012-007670

PATIENT
  Age: 26 Year
  Sex: Female

DRUGS (6)
  1. MAXIM [Suspect]
     Indication: ORAL CONTRACEPTION
     Dosage: 1 DF, QD
     Route: 048
     Dates: start: 201103, end: 201111
  2. VALETTE [Suspect]
     Indication: ORAL CONTRACEPTION
     Dosage: 1 DF, QD
     Route: 048
     Dates: start: 201103
  3. YAZ [Suspect]
     Indication: ORAL CONTRACEPTION
     Dosage: 1 DF, QD
     Route: 048
     Dates: start: 200912, end: 201001
  4. PETIBELLE [Suspect]
     Indication: ORAL CONTRACEPTION
     Dosage: 1 DF, QD
     Route: 048
     Dates: start: 200305, end: 200911
  5. PETIBELLE [Suspect]
     Indication: ORAL CONTRACEPTION
     Dosage: 1 DF, QD
     Route: 048
     Dates: start: 201002, end: 201103
  6. TRISISTON [Suspect]
     Indication: ORAL CONTRACEPTION
     Dosage: 1 DF, QD
     Route: 048
     Dates: start: 200206, end: 200304

REACTIONS (14)
  - Hepatic adenoma [Recovered/Resolved with Sequelae]
  - Abdominal pain [Recovered/Resolved with Sequelae]
  - Hepatic haemorrhage [Recovered/Resolved with Sequelae]
  - Fluid retention [Recovered/Resolved with Sequelae]
  - Oedema [Recovered/Resolved with Sequelae]
  - Fatigue [Recovered/Resolved with Sequelae]
  - Sleep disorder [Recovered/Resolved with Sequelae]
  - Night sweats [Recovered/Resolved with Sequelae]
  - Haemorrhagic anaemia [None]
  - Migraine [None]
  - Skin disorder [None]
  - Fluid retention [Recovered/Resolved]
  - Alopecia [None]
  - Hepatic cyst [None]
